FAERS Safety Report 8496298-3 (Version None)
Quarter: 2012Q3

REPORT INFORMATION
  Report Type: 
  Country: None (occurrence: None)
  Receive Date: 20120709
  Receipt Date: 20120628
  Transmission Date: 20120928
  Serious: Yes (Hospitalization)
  Sender: FDA-Public Use
  Company Number: US-JNJFOC-20120700684

PATIENT
  Sex: Male
  Weight: 147.87 kg

DRUGS (8)
  1. RISPERDAL [Suspect]
     Dosage: 2 MG IN AM AND 4 MG IN PM
     Route: 048
     Dates: end: 19970101
  2. TOPIRAMATE [Suspect]
     Indication: PRODUCT USED FOR UNKNOWN INDICATION
     Route: 048
  3. RISPERIDONE [Suspect]
     Indication: PRODUCT USED FOR UNKNOWN INDICATION
     Route: 065
  4. TOPAMAX [Suspect]
     Indication: PRODUCT USED FOR UNKNOWN INDICATION
     Route: 048
     Dates: end: 20120101
  5. RISPERDAL [Suspect]
     Dosage: 2 MG IN AM AND 4 MG IN PM
     Route: 048
     Dates: end: 20120101
  6. RISPERDAL [Suspect]
     Indication: PSYCHOTIC BEHAVIOUR
     Dosage: 2 MG IN AM AND 4 MG IN PM
     Route: 048
     Dates: end: 19870101
  7. DEPAKOTE [Suspect]
     Indication: PRODUCT USED FOR UNKNOWN INDICATION
     Route: 065
  8. LITHIUM CARBONATE [Suspect]
     Indication: PRODUCT USED FOR UNKNOWN INDICATION
     Route: 065

REACTIONS (4)
  - ADVERSE EVENT [None]
  - ABNORMAL BEHAVIOUR [None]
  - DIZZINESS [None]
  - FATIGUE [None]
